FAERS Safety Report 13029287 (Version 2)
Quarter: 2017Q1

REPORT INFORMATION
  Report Type: Spontaneous
  Country: US (occurrence: US)
  Receive Date: 20161215
  Receipt Date: 20170118
  Transmission Date: 20170428
  Serious: Yes (Other)
  Sender: FDA-Public Use
  Company Number: US-009507513-1612USA006689

PATIENT
  Age: 59 Year
  Sex: Female

DRUGS (5)
  1. HEXADROL [Suspect]
     Active Substance: DEXAMETHASONE
     Dosage: 1 TABLET, ONCE
     Route: 048
     Dates: start: 201606, end: 201606
  2. IBRANCE [Suspect]
     Active Substance: PALBOCICLIB
     Indication: NEOPLASM MALIGNANT
     Dosage: UNK
     Route: 048
     Dates: start: 20160621
  3. HEPARIN [Concomitant]
     Active Substance: HEPARIN SODIUM
  4. CARDIZEM [Concomitant]
     Active Substance: DILTIAZEM HYDROCHLORIDE
  5. WARFARIN [Concomitant]
     Active Substance: WARFARIN

REACTIONS (1)
  - Palpitations [Not Recovered/Not Resolved]

NARRATIVE: CASE EVENT DATE: 201606
